FAERS Safety Report 4873102-3 (Version None)
Quarter: 2006Q1

REPORT INFORMATION
  Report Type: 
  Country: None (occurrence: None)
  Receive Date: 20060103
  Receipt Date: 20060103
  Transmission Date: 20060701
  Serious: No
  Sender: FDA-Public Use
  Company Number: None

PATIENT
  Sex: Female

DRUGS (1)
  1. MEDROXYPR AC  10MG   BARR [Suspect]
     Indication: ENDOMETRIOSIS
     Dosage: 1 TABLET   DAILY  PO
     Route: 048
     Dates: start: 20051007, end: 20051106

REACTIONS (2)
  - DRUG INEFFECTIVE [None]
  - PHARMACEUTICAL PRODUCT COMPLAINT [None]
